FAERS Safety Report 20810776 (Version 10)
Quarter: 2024Q1

REPORT INFORMATION
  Report Type: Spontaneous
  Country: US (occurrence: US)
  Receive Date: 20220510
  Receipt Date: 20240119
  Transmission Date: 20240410
  Serious: Yes (Other)
  Sender: FDA-Public Use
  Company Number: US-PFIZER INC-202200230234

PATIENT
  Age: 70 Year
  Sex: Male

DRUGS (6)
  1. XELJANZ XR [Suspect]
     Active Substance: TOFACITINIB CITRATE
     Indication: Rheumatoid arthritis
     Dosage: 11 MG, 1X/DAY
     Route: 048
     Dates: start: 20211219, end: 202208
  2. XELJANZ XR [Suspect]
     Active Substance: TOFACITINIB CITRATE
     Dosage: UNK
     Dates: end: 202210
  3. XELJANZ XR [Suspect]
     Active Substance: TOFACITINIB CITRATE
     Dosage: UNK
     Dates: end: 202211
  4. XELJANZ XR [Suspect]
     Active Substance: TOFACITINIB CITRATE
     Dosage: 11 MG, 1X/DAY
     Route: 048
     Dates: start: 202301, end: 2023
  5. XELJANZ XR [Suspect]
     Active Substance: TOFACITINIB CITRATE
     Dosage: 11 MG, 1X/DAY
     Route: 048
     Dates: start: 202301
  6. XELJANZ XR [Suspect]
     Active Substance: TOFACITINIB CITRATE
     Dosage: 11 MG, 1X/DAY
     Route: 048
     Dates: start: 202306

REACTIONS (13)
  - Tooth disorder [Unknown]
  - Endodontic procedure [Unknown]
  - Joint lock [Recovering/Resolving]
  - Trigger finger [Recovered/Resolved]
  - Joint noise [Recovered/Resolved]
  - Liver function test abnormal [Recovered/Resolved]
  - Peripheral swelling [Recovering/Resolving]
  - Arthralgia [Recovered/Resolved]
  - Temporomandibular joint syndrome [Unknown]
  - Illness [Unknown]
  - COVID-19 [Unknown]
  - Bronchitis [Unknown]
  - Tooth infection [Unknown]

NARRATIVE: CASE EVENT DATE: 20220801
